FAERS Safety Report 6984699-1 (Version None)
Quarter: 2010Q3

REPORT INFORMATION
  Report Type: 
  Country: None (occurrence: None)
  Receive Date: 20100913
  Receipt Date: 20100913
  Transmission Date: 20110219
  Serious: Yes (Hospitalization)
  Sender: FDA-Public Use
  Company Number: None

PATIENT
  Sex: Female
  Weight: 109.1 kg

DRUGS (1)
  1. CISPLATIN [Suspect]
     Dosage: 200 MG

REACTIONS (2)
  - BLOOD GLUCOSE INCREASED [None]
  - PULMONARY EMBOLISM [None]
